FAERS Safety Report 17540911 (Version 1)
Quarter: 2020Q1

REPORT INFORMATION
  Report Type: Spontaneous
  Country: ID (occurrence: ID)
  Receive Date: 20200313
  Receipt Date: 20200313
  Transmission Date: 20200409
  Serious: Yes (Other)
  Sender: FDA-Public Use
  Company Number: ID-ALLERGAN-2011314US

PATIENT

DRUGS (1)
  1. FOSFOMYCIN TROMETHAMINE - BP [Suspect]
     Active Substance: FOSFOMYCIN TROMETHAMINE
     Indication: EXPOSURE DURING PREGNANCY
     Dosage: 3 G
     Route: 064

REACTIONS (3)
  - Pregnancy [Unknown]
  - Premature baby [Unknown]
  - Pneumonia [Unknown]
